FAERS Safety Report 9070838 (Version 2)
Quarter: 2013Q1

REPORT INFORMATION
  Report Type: Spontaneous
  Country: NL (occurrence: NL)
  Receive Date: 20130129
  Receipt Date: 20130207
  Transmission Date: 20140127
  Serious: Yes (Other)
  Sender: FDA-Public Use
  Company Number: NL-PFIZER INC-2013038460

PATIENT
  Age: 66 Year
  Sex: Male
  Weight: 72 kg

DRUGS (4)
  1. PANTOPRAZOLE [Suspect]
     Indication: HELICOBACTER INFECTION
     Dosage: 40 MG, 2X/DAY
     Route: 048
     Dates: start: 20121129, end: 20121205
  2. CLARITHROMYCIN [Suspect]
     Indication: HELICOBACTER INFECTION
     Dosage: 500 MG, 2X/DAY
     Dates: start: 20121129, end: 20121205
  3. AMOXICILLIN [Suspect]
     Indication: HELICOBACTER INFECTION
     Dosage: 1000 MG, 2X/DAY
     Dates: start: 20121129, end: 20121205
  4. ZINC [Concomitant]
     Indication: HAEMORRHOIDS

REACTIONS (5)
  - Nightmare [Recovering/Resolving]
  - Mental disorder [Recovering/Resolving]
  - Anal pruritus [Recovering/Resolving]
  - Insomnia [Unknown]
  - Diarrhoea [Unknown]
